FAERS Safety Report 8321280-6 (Version None)
Quarter: 2012Q2

REPORT INFORMATION
  Report Type: 
  Country: None (occurrence: None)
  Receive Date: 20120430
  Receipt Date: 20120420
  Transmission Date: 20120825
  Serious: Yes (Other)
  Sender: FDA-Public Use
  Company Number: US-CELGENEUS-163-20785-12042440

PATIENT
  Sex: Female

DRUGS (3)
  1. ZOCOR [Concomitant]
     Route: 065
  2. TOPROL-XL [Concomitant]
     Route: 065
  3. THALOMID [Suspect]
     Dosage: 200 MILLIGRAM
     Route: 048
     Dates: start: 20091001, end: 20120401

REACTIONS (2)
  - FEELING ABNORMAL [None]
  - ASTHENIA [None]
